FAERS Safety Report 4824728-4 (Version None)
Quarter: 2005Q4

REPORT INFORMATION
  Report Type: 
  Country: None (occurrence: None)
  Receive Date: 20051109
  Receipt Date: 20051024
  Transmission Date: 20060501
  Serious: Yes (Death, Hospitalization)
  Sender: FDA-Public Use
  Company Number: A-JP2005-10748

PATIENT
  Age: 43 Year
  Sex: Female

DRUGS (13)
  1. TRACLEER [Suspect]
     Indication: PULMONARY HYPERTENSION
     Dosage: 62.5 MG, QD, ORAL
     Route: 048
     Dates: start: 20050913, end: 20050920
  2. MOSAPRIDE CITRATE [Concomitant]
  3. TRIMEBUTINE MALEATE (TRIMEBUTINE MALEATE) [Concomitant]
  4. BERAPROST SODIUM (BERAPROST SODIUM) [Concomitant]
  5. LANSOPRAZOLE [Concomitant]
  6. PREDNISONE [Concomitant]
  7. D-PENICILLAMINE [Concomitant]
  8. MIYA-BT [Concomitant]
  9. DAI-KENCHU-TO [Concomitant]
  10. ALENDRONATE SODIUM [Concomitant]
  11. LACTOMIN (LACTOBACILLUS SPOROGENES) [Concomitant]
  12. ERYTHROMYCIN STEARATE (ERYTHROMYCIN STEARATE) [Concomitant]
  13. CEFCAPENE PIVOXIL HYDROCHLORIDE (CEFCAPENE PIVOXIL HYDROCHLORIDE) [Concomitant]

REACTIONS (6)
  - BLOOD FOLATE INCREASED [None]
  - DIARRHOEA [None]
  - NORMOCHROMIC NORMOCYTIC ANAEMIA [None]
  - SERUM FERRITIN INCREASED [None]
  - SYSTEMIC SCLEROSIS [None]
  - VITAMIN B12 INCREASED [None]
